FAERS Safety Report 19704486 (Version 2)
Quarter: 2021Q3

REPORT INFORMATION
  Report Type: Report from Study
  Country: KR (occurrence: KR)
  Receive Date: 20210816
  Receipt Date: 20210901
  Transmission Date: 20211014
  Serious: Yes (Hospitalization)
  Sender: FDA-Public Use
  Company Number: KR-NALPROPION PHARMACEUTICALS INC.-2021-013774

PATIENT

DRUGS (9)
  1. CONTRAVE [Suspect]
     Active Substance: BUPROPION HYDROCHLORIDE\NALTREXONE HYDROCHLORIDE
     Dosage: 2 TABLET EVERY MORNING, 1 TABLET EVERY EVENING
     Route: 048
     Dates: start: 20210616, end: 20210622
  2. HIRAX [Concomitant]
     Indication: INTERVERTEBRAL DISC DISORDER
     Dosage: 1500 IU, ONCE A DAY (ROUTE? NERVE BLOCK)
     Route: 050
     Dates: start: 20210707, end: 20210707
  3. CONTRAVE [Suspect]
     Active Substance: BUPROPION HYDROCHLORIDE\NALTREXONE HYDROCHLORIDE
     Indication: PRODUCT USED FOR UNKNOWN INDICATION
     Dosage: 1TAB/DAY (ONCE IN THE MORNING)
     Route: 048
     Dates: start: 20210602, end: 20210608
  4. CONTRAVE [Suspect]
     Active Substance: BUPROPION HYDROCHLORIDE\NALTREXONE HYDROCHLORIDE
     Dosage: 2 TABLET EVERY MORNING, 2 TABLET EVERY EVENING
     Route: 048
     Dates: start: 20210706, end: 20210717
  5. DEXAMETHASONE DISODIUM PHOSPHATE [Concomitant]
     Active Substance: DEXAMETHASONE SODIUM PHOSPHATE
     Indication: INTERVERTEBRAL DISC DISORDER
     Dosage: 5 MG, ONCE IN A DAY (ROUTE: NERVE BLOCK)
     Route: 050
     Dates: start: 20210707, end: 20210707
  6. CONTRAVE [Suspect]
     Active Substance: BUPROPION HYDROCHLORIDE\NALTREXONE HYDROCHLORIDE
     Dosage: UNK
     Route: 048
     Dates: start: 20210722
  7. CONTRAVE [Suspect]
     Active Substance: BUPROPION HYDROCHLORIDE\NALTREXONE HYDROCHLORIDE
     Dosage: 2 TABLET EVERY MORNING, 2 TABLET EVERY EVENING
     Route: 048
     Dates: start: 20210623, end: 20210705
  8. LIDOCAINE HCL [Concomitant]
     Active Substance: LIDOCAINE HYDROCHLORIDE
     Indication: INTERVERTEBRAL DISC DISORDER
     Dosage: 5 ML, ONCE IN A DAY (ROUTE: NERVE BLOCK)
     Route: 050
     Dates: start: 20210707, end: 20210707
  9. CONTRAVE [Suspect]
     Active Substance: BUPROPION HYDROCHLORIDE\NALTREXONE HYDROCHLORIDE
     Dosage: 1 TABLET EVERY MORNING, 1 TABLET EVERY EVENING
     Route: 048
     Dates: start: 20210609, end: 20210615

REACTIONS (1)
  - Colitis [Recovered/Resolved]

NARRATIVE: CASE EVENT DATE: 20210718
